FAERS Safety Report 12627726 (Version 2)
Quarter: 2016Q3

REPORT INFORMATION
  Report Type: Report from Study
  Country: US (occurrence: US)
  Receive Date: 20160805
  Receipt Date: 20160907
  Transmission Date: 20161109
  Serious: Yes (Other)
  Sender: FDA-Public Use
  Company Number: US-ASTRAZENECA-2016SE53097

PATIENT
  Sex: Female

DRUGS (16)
  1. ZOMETA [Concomitant]
     Active Substance: ZOLEDRONIC ACID
  2. MEGESTROL [Concomitant]
     Active Substance: MEGESTROL
  3. IRESSA [Suspect]
     Active Substance: GEFITINIB
     Indication: LUNG CARCINOMA CELL TYPE UNSPECIFIED STAGE 0
     Route: 048
     Dates: start: 20160509
  4. FENTANYL. [Concomitant]
     Active Substance: FENTANYL
  5. METRONIDAZOLE. [Concomitant]
     Active Substance: METRONIDAZOLE
  6. WARFARIN [Concomitant]
     Active Substance: WARFARIN
  7. GILOTRIF [Concomitant]
     Active Substance: AFATINIB
  8. BENAZEPRIL [Concomitant]
     Active Substance: BENAZEPRIL HYDROCHLORIDE
  9. HYRDOCODONE [Concomitant]
  10. DIPHENOXYLATE-ATROPINE [Concomitant]
  11. CIPROFLOXACIN. [Concomitant]
     Active Substance: CIPROFLOXACIN
  12. PANTOPRAZOLE [Concomitant]
     Active Substance: PANTOPRAZOLE SODIUM
  13. PAIN MEDICATION [Concomitant]
     Active Substance: UNSPECIFIED INGREDIENT
  14. HCTZ [Concomitant]
     Active Substance: HYDROCHLOROTHIAZIDE
  15. NAPROXEN. [Concomitant]
     Active Substance: NAPROXEN
  16. CALCIUM [Concomitant]
     Active Substance: CALCIUM

REACTIONS (9)
  - Malaise [Unknown]
  - Arthralgia [Unknown]
  - Pharyngitis [Unknown]
  - Lip blister [Unknown]
  - Deep vein thrombosis [Unknown]
  - Dysphagia [Unknown]
  - Dry skin [Unknown]
  - Gingival pain [Unknown]
  - Mouth swelling [Unknown]
